FAERS Safety Report 17433435 (Version 5)
Quarter: 2020Q2

REPORT INFORMATION
  Report Type: Report from Study
  Country: US (occurrence: US)
  Receive Date: 20200219
  Receipt Date: 20200408
  Transmission Date: 20200713
  Serious: Yes (Hospitalization)
  Sender: FDA-Public Use
  Company Number: US-EMD SERONO-9146491

PATIENT
  Age: 61 Year
  Sex: Male

DRUGS (4)
  1. REBIF [Suspect]
     Active Substance: INTERFERON BETA-1A
     Indication: MULTIPLE SCLEROSIS
     Dosage: PREFILLED SYRINGE
     Route: 058
     Dates: start: 20150608, end: 20180110
  2. REBIF [Suspect]
     Active Substance: INTERFERON BETA-1A
     Dosage: MANUAL, REBIDOSE
     Route: 058
     Dates: start: 20200318
  3. REBIF [Suspect]
     Active Substance: INTERFERON BETA-1A
     Route: 058
     Dates: start: 20180316, end: 20200205
  4. TYLENOL [Concomitant]
     Active Substance: ACETAMINOPHEN
     Indication: PREMEDICATION

REACTIONS (9)
  - Cystitis [Recovering/Resolving]
  - Treatment noncompliance [Recovered/Resolved]
  - Gastrointestinal infection [Recovering/Resolving]
  - Headache [Unknown]
  - Insurance issue [Recovered/Resolved]
  - Diverticulitis [Recovering/Resolving]
  - Gastrointestinal fistula [Recovered/Resolved]
  - Abscess [Unknown]
  - Weight decreased [Unknown]

NARRATIVE: CASE EVENT DATE: 2016
